FAERS Safety Report 6748612-4 (Version None)
Quarter: 2010Q2

REPORT INFORMATION
  Report Type: 
  Country: None (occurrence: None)
  Receive Date: 20100601
  Receipt Date: 20100520
  Transmission Date: 20101027
  Serious: Yes (Other)
  Sender: FDA-Public Use
  Company Number: US-JNJFOC-20091104523

PATIENT
  Sex: Male
  Weight: 77.11 kg

DRUGS (3)
  1. LEVAQUIN [Suspect]
     Indication: POSTOPERATIVE WOUND INFECTION
     Route: 048
     Dates: start: 20090901
  2. LEVAQUIN [Suspect]
     Route: 048
     Dates: start: 20090901
  3. BACTROBAN [Concomitant]
     Route: 065

REACTIONS (7)
  - ARTHRALGIA [None]
  - BACK PAIN [None]
  - INCISION SITE PAIN [None]
  - INCISIONAL DRAINAGE [None]
  - MYALGIA [None]
  - SENSORY DISTURBANCE [None]
  - TENDON RUPTURE [None]
